FAERS Safety Report 18133078 (Version 2)
Quarter: 2021Q1

REPORT INFORMATION
  Report Type: Report from Study
  Country: CA (occurrence: CA)
  Receive Date: 20200811
  Receipt Date: 20210220
  Transmission Date: 20210419
  Serious: Yes (Other)
  Sender: FDA-Public Use
  Company Number: CA-AUROBINDO-AUR-APL-2020-038357

PATIENT
  Age: 8 Year
  Sex: Female

DRUGS (2)
  1. BENZYLPENICILLIN [Concomitant]
     Active Substance: PENICILLIN G
     Indication: SKIN TEST
     Dosage: 50000 INTERNATIONAL UNIT PER MILLILITRE
     Route: 023
  2. AMOXICILLIN. [Suspect]
     Active Substance: AMOXICILLIN
     Indication: DRUG PROVOCATION TEST
     Dosage: 45 MILLIGRAM/KILOGRAM (1/100, 1/10, AND FULL DOSE AT 30 MINUTE INTERVALS)
     Route: 048

REACTIONS (3)
  - Type I hypersensitivity [Unknown]
  - Urticaria [Recovered/Resolved]
  - Angioedema [Recovered/Resolved]
